FAERS Safety Report 7966054-0 (Version None)
Quarter: 2011Q4

REPORT INFORMATION
  Report Type: 
  Country: None (occurrence: None)
  Receive Date: 20111208
  Receipt Date: 20111128
  Transmission Date: 20120403
  Serious: Yes (Other)
  Sender: FDA-Public Use
  Company Number: FR-BAXTER-2011BH037870

PATIENT
  Age: 50 Year
  Sex: Female

DRUGS (9)
  1. FLUOROURACIL [Suspect]
     Route: 042
     Dates: start: 20091228, end: 20091228
  2. EPIRUBICIN HYDROCHLORIDE [Suspect]
     Indication: BREAST CANCER
     Route: 042
     Dates: start: 20100118, end: 20100118
  3. CYCLOPHOSPHAMIDE [Suspect]
     Route: 042
     Dates: start: 20091204, end: 20091204
  4. FLUOROURACIL [Suspect]
     Route: 042
     Dates: start: 20091204, end: 20091204
  5. EPIRUBICIN HYDROCHLORIDE [Suspect]
     Route: 042
     Dates: start: 20091228, end: 20091228
  6. EPIRUBICIN HYDROCHLORIDE [Suspect]
     Route: 042
     Dates: start: 20091204, end: 20091204
  7. CYCLOPHOSPHAMIDE [Suspect]
     Route: 042
     Dates: start: 20091228, end: 20091228
  8. FLUOROURACIL [Suspect]
     Indication: BREAST CANCER
     Route: 042
     Dates: start: 20100118, end: 20100118
  9. CYCLOPHOSPHAMIDE [Suspect]
     Indication: BREAST CANCER
     Route: 042
     Dates: start: 20100118, end: 20100118

REACTIONS (3)
  - SKIN NECROSIS [None]
  - EXTRAVASATION [None]
  - OEDEMA [None]
